FAERS Safety Report 7964567-9 (Version None)
Quarter: 2011Q4

REPORT INFORMATION
  Report Type: 
  Country: None (occurrence: None)
  Receive Date: 20111121
  Receipt Date: 20110901
  Transmission Date: 20120403
  Serious: No
  Sender: FDA-Public Use
  Company Number: 1000023440

PATIENT
  Age: 62 Year
  Sex: Male

DRUGS (7)
  1. VIIBRYD [Suspect]
     Indication: MAJOR DEPRESSION
     Dosage: 40 MG (40 MG, 1 IN 1 D), ORAL
     Route: 048
     Dates: start: 20110729, end: 20110801
  2. VIIBRYD [Suspect]
     Indication: MAJOR DEPRESSION
     Dosage: 10 MG (10 MG, 1 IN 1 D), ORAL; 20 MG (20 MG, 1 IN 1 D), ORAL
     Route: 048
     Dates: start: 20110715, end: 20110721
  3. VIIBRYD [Suspect]
     Indication: MAJOR DEPRESSION
     Dosage: 10 MG (10 MG, 1 IN 1 D), ORAL; 20 MG (20 MG, 1 IN 1 D), ORAL
     Route: 048
     Dates: start: 20110722, end: 20110728
  4. METOPROLOL TARTRATE [Concomitant]
  5. XANAX [Concomitant]
  6. TRAZODONE HCL [Concomitant]
  7. HYDROCHLOROTHIAZIDE [Concomitant]

REACTIONS (5)
  - TACHYPHRENIA [None]
  - HALLUCINATION, VISUAL [None]
  - FEELING JITTERY [None]
  - PANIC ATTACK [None]
  - TREMOR [None]
